FAERS Safety Report 4871611-4 (Version None)
Quarter: 2005Q4

REPORT INFORMATION
  Report Type: 
  Country: None (occurrence: None)
  Receive Date: 20051230
  Receipt Date: 20051212
  Transmission Date: 20060501
  Serious: Yes (Other)
  Sender: FDA-Public Use
  Company Number: CO-2005-026505

PATIENT
  Age: 54 Year
  Sex: Female
  Weight: 76 kg

DRUGS (1)
  1. ANGELIQ [Suspect]
     Indication: HORMONE REPLACEMENT THERAPY
     Dosage: ORAL
     Route: 048
     Dates: start: 20050301, end: 20050901

REACTIONS (5)
  - ASTHENIA [None]
  - EYE DISORDER [None]
  - EYE INFLAMMATION [None]
  - VARICOSE VEIN [None]
  - VISUAL DISTURBANCE [None]
